FAERS Safety Report 19615080 (Version 6)
Quarter: 2022Q1

REPORT INFORMATION
  Report Type: Report from Study
  Country: JP (occurrence: JP)
  Receive Date: 20210727
  Receipt Date: 20220224
  Transmission Date: 20220423
  Serious: Yes (Death, Life-Threatening, Hospitalization)
  Sender: FDA-Public Use
  Company Number: JP-KYOWAKIRIN-2021AKK012571

PATIENT

DRUGS (39)
  1. MOGAMULIZUMAB [Suspect]
     Active Substance: MOGAMULIZUMAB
     Indication: Adult T-cell lymphoma/leukaemia
     Dosage: 1 MG/KG
     Route: 041
     Dates: start: 20160516, end: 20160516
  2. DEXCHLORPHENIRAMINE MALEATE [Concomitant]
     Active Substance: DEXCHLORPHENIRAMINE MALEATE
     Indication: Prophylaxis
     Dosage: UNK
     Route: 048
     Dates: start: 20160516, end: 20160516
  3. DEXAMETHASONE SODIUM PHOSPHATE [Concomitant]
     Active Substance: DEXAMETHASONE SODIUM PHOSPHATE
     Indication: Prophylaxis
     Dosage: 6.6 MG
     Route: 065
     Dates: start: 20160516, end: 20160516
  4. ISCOTIN [Concomitant]
     Active Substance: ISONIAZID
     Indication: Infection prophylaxis
     Dosage: UNK
     Route: 048
     Dates: start: 20160512, end: 20160615
  5. ITRACONAZOLE [Concomitant]
     Active Substance: ITRACONAZOLE
     Indication: Infection prophylaxis
     Dosage: UNK
     Route: 048
     Dates: start: 20160512, end: 20160527
  6. SULFAMETHOXAZOLE\TRIMETHOPRIM [Concomitant]
     Active Substance: SULFAMETHOXAZOLE\TRIMETHOPRIM
     Indication: Infection prophylaxis
     Dosage: UNK
     Route: 048
     Dates: start: 20160512, end: 20160615
  7. MAGNESIUM OXIDE [Concomitant]
     Active Substance: MAGNESIUM OXIDE
     Indication: Prophylaxis
     Dosage: UNK
     Route: 048
     Dates: end: 20160609
  8. POTASSIUM ASPARTATE [Concomitant]
     Active Substance: POTASSIUM ASPARTATE
     Indication: Prophylaxis
     Dosage: UNK
     Route: 048
     Dates: start: 20160601, end: 20160602
  9. MIYA-BM [Concomitant]
     Active Substance: CLOSTRIDIUM BUTYRICUM SPORES STRAIN M-55
     Indication: Prophylaxis
     Dosage: UNK
     Route: 048
     Dates: end: 20160615
  10. UBIDECARENONE [Concomitant]
     Active Substance: UBIDECARENONE
     Indication: Prophylaxis
     Dosage: UNK
     Route: 048
     Dates: end: 20160615
  11. RABEPRAZOLE SODIUM [Concomitant]
     Active Substance: RABEPRAZOLE SODIUM
     Indication: Prophylaxis
     Dosage: UNK
     Route: 048
     Dates: end: 20160609
  12. PREDONINE [Concomitant]
     Active Substance: PREDNISOLONE
     Indication: Prophylaxis
     Dosage: UNK
     Route: 048
     Dates: end: 20160607
  13. DIMEMORFAN PHOSPHATE [Concomitant]
     Active Substance: DIMEMORFAN PHOSPHATE
     Indication: Cough
     Dosage: UNK
     Route: 048
     Dates: end: 20160520
  14. PANTOL [PANTHENOL] [Concomitant]
     Indication: Decreased appetite
     Dosage: UNK
     Route: 065
     Dates: start: 20160523, end: 20160528
  15. MORPHINE HYDROCHLORIDE [Concomitant]
     Active Substance: MORPHINE HYDROCHLORIDE
     Indication: Sedation
     Dosage: UNK
     Route: 065
     Dates: start: 20160612, end: 20160616
  16. GLYCERIN [Concomitant]
     Active Substance: GLYCERIN
     Indication: Constipation
     Dosage: UNK
     Route: 054
     Dates: start: 20160520, end: 20160525
  17. SAMSCA [Concomitant]
     Active Substance: TOLVAPTAN
     Indication: Pleural effusion
     Dosage: UNK
     Route: 048
     Dates: start: 20160529, end: 20160615
  18. DEXTROSE [Concomitant]
     Active Substance: DEXTROSE
     Indication: Prophylaxis
     Dosage: UNK
     Route: 065
     Dates: start: 20160614, end: 20160617
  19. FILGRASTIM [Concomitant]
     Active Substance: FILGRASTIM
     Indication: Prophylaxis
     Dosage: UNK
     Route: 065
     Dates: start: 20160520, end: 20160615
  20. FURMETHY [Concomitant]
     Indication: Decreased appetite
     Dosage: UNK
     Route: 065
     Dates: start: 20160523, end: 20160528
  21. AMINO ACIDS\DEXTROSE\ELECTROLYTES NOS\VITAMINS [Concomitant]
     Active Substance: AMINO ACIDS\DEXTROSE\ELECTROLYTES NOS\VITAMINS
     Indication: Decreased appetite
     Dosage: UNK
     Route: 065
     Dates: end: 20160602
  22. GASTER [Concomitant]
     Active Substance: FAMOTIDINE
     Indication: Prophylaxis
     Dosage: UNK
     Route: 065
     Dates: start: 20160523, end: 20160616
  23. SAXIZON [Concomitant]
     Active Substance: HYDROCORTISONE SODIUM SUCCINATE
     Indication: Prophylaxis
     Dosage: UNK
     Route: 065
     Dates: start: 20160609, end: 20160613
  24. SOLDEM 3A [Concomitant]
     Active Substance: CARBOHYDRATES\POTASSIUM CHLORIDE\SODIUM CHLORIDE\SODIUM LACTATE
     Indication: Decreased appetite
     Dosage: UNK
     Route: 065
     Dates: start: 20160523, end: 20160523
  25. DEXTROSE\SODIUM CHLORIDE\SODIUM LACTATE [Concomitant]
     Active Substance: DEXTROSE\SODIUM CHLORIDE\SODIUM LACTATE
     Indication: Electrolyte imbalance
     Dosage: UNK
     Route: 065
     Dates: start: 20160609, end: 20160613
  26. SPIRONOLACTONE [Concomitant]
     Active Substance: SPIRONOLACTONE
     Indication: Face oedema
     Dosage: UNK
     Route: 048
     Dates: start: 20160603, end: 20160615
  27. PRIMPERAN [Concomitant]
     Active Substance: METOCLOPRAMIDE HYDROCHLORIDE
     Indication: Decreased appetite
     Dosage: UNK
     Route: 065
     Dates: start: 20160523, end: 20160528
  28. SENNOSIDES A AND B [Concomitant]
     Active Substance: SENNOSIDES A AND B
     Indication: Constipation
     Dosage: UNK
     Route: 048
     Dates: start: 20160519, end: 20160609
  29. OFLOXACIN [Concomitant]
     Active Substance: OFLOXACIN
     Indication: Ear haemorrhage
     Dosage: UNK
     Route: 001
     Dates: start: 20160612, end: 20160613
  30. FLURBIPROFEN AXETIL [Concomitant]
     Active Substance: FLURBIPROFEN AXETIL
     Indication: Infusion related reaction
     Dosage: UNK
     Route: 065
     Dates: start: 20160609, end: 20160609
  31. FEBUXOSTAT [Concomitant]
     Active Substance: FEBUXOSTAT
     Indication: Prophylaxis
     Dosage: UNK
     Route: 048
     Dates: end: 20160615
  32. FUROSEMIDE [Concomitant]
     Active Substance: FUROSEMIDE
     Dosage: UNK
     Route: 065
     Dates: end: 20160608
  33. FUROSEMIDE [Concomitant]
     Active Substance: FUROSEMIDE
     Indication: Face oedema
     Dosage: UNK
     Route: 048
     Dates: start: 20160527, end: 20160602
  34. FUROSEMIDE [Concomitant]
     Active Substance: FUROSEMIDE
     Indication: Prophylaxis
  35. MOSAPRIDE CITRATE [Concomitant]
     Active Substance: MOSAPRIDE CITRATE
     Indication: Prophylaxis
     Dosage: UNK
     Route: 048
     Dates: start: 20160528, end: 20160615
  36. SODIUM PICOSULFATE [Concomitant]
     Active Substance: SODIUM PICOSULFATE
     Indication: Constipation
     Dosage: UNK
     Route: 048
     Dates: start: 20160522, end: 20160523
  37. PROSTANDIN [ALPROSTADIL ALFADEX] [Concomitant]
     Indication: Skin erosion
     Dosage: UNK
     Route: 061
     Dates: start: 20160610, end: 20160611
  38. MAXIPIME [Concomitant]
     Active Substance: CEFEPIME HYDROCHLORIDE
     Indication: Infusion related reaction
     Dosage: UNK
     Route: 065
     Dates: start: 20160609, end: 20160615
  39. AMPICILLIN SODIUM\SULBACTAM SODIUM [Concomitant]
     Active Substance: AMPICILLIN SODIUM\SULBACTAM SODIUM
     Indication: Infusion related reaction
     Dosage: UNK
     Route: 042
     Dates: start: 20160609, end: 20160615

REACTIONS (11)
  - Electrolyte imbalance [Not Recovered/Not Resolved]
  - Infusion related reaction [Recovered/Resolved]
  - Constipation [Not Recovered/Not Resolved]
  - Face oedema [Recovered/Resolved]
  - Pleural effusion [Recovering/Resolving]
  - Decreased appetite [Not Recovered/Not Resolved]
  - General physical health deterioration [Fatal]
  - Ear haemorrhage [Not Recovered/Not Resolved]
  - Malaise [Not Recovered/Not Resolved]
  - Skin erosion [Not Recovered/Not Resolved]
  - Erythema [Not Recovered/Not Resolved]

NARRATIVE: CASE EVENT DATE: 20160517
